FAERS Safety Report 21021550 (Version 2)
Quarter: 2022Q3

REPORT INFORMATION
  Report Type: Spontaneous
  Country: EG (occurrence: EG)
  Receive Date: 20220629
  Receipt Date: 20220714
  Transmission Date: 20221027
  Serious: Yes (Life-Threatening, Hospitalization, Other)
  Sender: FDA-Public Use
  Company Number: EG-NOVOPROD-929971

PATIENT
  Sex: Female

DRUGS (3)
  1. TRESIBA [Suspect]
     Active Substance: INSULIN DEGLUDEC
     Indication: Product used for unknown indication
     Dosage: UNK
     Route: 065
  2. HUMALOG [Suspect]
     Active Substance: INSULIN LISPRO
     Dosage: TOOK 1 U INSTEAD OF 0.5 (2 WEEKS AGO)
     Route: 065
  3. HUMALOG [Suspect]
     Active Substance: INSULIN LISPRO
     Indication: Product used for unknown indication
     Dosage: TOOK 1 U INSTEAD OF 0.5 (1.5 MONTH AGO)
     Route: 065

REACTIONS (3)
  - Hypoglycaemic coma [Unknown]
  - Hypoglycaemic coma [Unknown]
  - Product availability issue [Unknown]
